FAERS Safety Report 4804004-6 (Version None)
Quarter: 2005Q3

REPORT INFORMATION
  Report Type: 
  Country: None (occurrence: None)
  Receive Date: 20050920
  Receipt Date: 20050719
  Transmission Date: 20060218
  Serious: No
  Sender: FDA-Public Use
  Company Number: US-YAMANOUCHI-YPA20050404

PATIENT
  Age: 86 Year
  Sex: Female
  Weight: 49.8957 kg

DRUGS (9)
  1. VESICARE [Suspect]
     Indication: HYPERTONIC BLADDER
     Dosage: 5 MG QD PO
     Route: 048
     Dates: start: 20050712
  2. CLARINEX [Concomitant]
  3. AVAPRO [Concomitant]
  4. CELEXA [Concomitant]
  5. LIPITOR [Concomitant]
  6. ZANTAC [Concomitant]
  7. LEUTINE [Concomitant]
  8. OS-CAL [Concomitant]
  9. PRESERVISION [Concomitant]

REACTIONS (1)
  - PARAESTHESIA [None]
